FAERS Safety Report 8282454-6 (Version None)
Quarter: 2012Q2

REPORT INFORMATION
  Report Type: 
  Country: None (occurrence: None)
  Receive Date: 20120413
  Receipt Date: 20120409
  Transmission Date: 20120825
  Serious: Yes (Death, Other)
  Sender: FDA-Public Use
  Company Number: US-PFIZER INC-2012070841

PATIENT
  Sex: Female

DRUGS (3)
  1. HYDROCODONE [Suspect]
     Dosage: UNK
  2. ALPRAZOLAM [Suspect]
     Dosage: UNK
  3. OXYCODONE HCL [Suspect]
     Dosage: UNK

REACTIONS (4)
  - THYROIDITIS CHRONIC [None]
  - ACCIDENTAL POISONING [None]
  - BRONCHOPNEUMONIA [None]
  - TOXICITY TO VARIOUS AGENTS [None]
